FAERS Safety Report 5140969-3 (Version None)
Quarter: 2006Q4

REPORT INFORMATION
  Report Type: 
  Country: None (occurrence: None)
  Receive Date: 20061027
  Receipt Date: 20061027
  Transmission Date: 20070319
  Serious: Yes (Other)
  Sender: FDA-Public Use
  Company Number: None

PATIENT
  Age: 50 Year
  Sex: Female
  Weight: 70.7611 kg

DRUGS (2)
  1. CLINDAMYCIN HCL [Suspect]
     Indication: ENDODONTIC PROCEDURE
     Dosage: 1 PILL 3X''S A DAY
     Dates: start: 20061022, end: 20061024
  2. CLINDAMYCIN HCL [Suspect]
     Indication: INFECTION
     Dosage: 1 PILL 3X''S A DAY
     Dates: start: 20061022, end: 20061024

REACTIONS (1)
  - STOMATITIS [None]
